FAERS Safety Report 21057327 (Version 5)
Quarter: 2024Q2

REPORT INFORMATION
  Report Type: Other
  Country: DE (occurrence: DE)
  Receive Date: 20220708
  Receipt Date: 20240513
  Transmission Date: 20240716
  Serious: No
  Sender: FDA-Public Use
  Company Number: DE-ROCHE-2766429

PATIENT
  Age: 42 Year
  Sex: Female

DRUGS (18)
  1. OCREVUS [Suspect]
     Active Substance: OCRELIZUMAB
     Indication: Neuromyelitis optica spectrum disorder
     Dosage: FIRST INITIAL DOSE (DOSAGE : 600, 208 DAYS)
     Route: 042
     Dates: start: 20210204
  2. OCREVUS [Suspect]
     Active Substance: OCRELIZUMAB
     Dosage: SECOND INITIAL DOSE (DOSAGE :600 MG, 208 DAYS)
     Route: 042
     Dates: start: 20210217
  3. DOXAZOSIN [Suspect]
     Active Substance: DOXAZOSIN MESYLATE
     Indication: Product used for unknown indication
     Route: 065
  4. EZETIMIBE [Suspect]
     Active Substance: EZETIMIBE
     Indication: Product used for unknown indication
     Route: 065
  5. TILIDINE [Concomitant]
     Active Substance: TILIDINE
  6. RAMIPRIL [Concomitant]
     Active Substance: RAMIPRIL
     Dosage: 1-0-1
  7. NITRANGIN [Concomitant]
  8. AMLODIPINE [Concomitant]
     Active Substance: AMLODIPINE BESYLATE
     Dosage: 1-0-1
  9. AMLODIPINE [Concomitant]
     Active Substance: AMLODIPINE BESYLATE
     Dosage: 5 MG, 2X/DAY, 1-0-1
  10. AMINOPHYLLINE\QUININE SULFATE [Concomitant]
     Active Substance: AMINOPHYLLINE\QUININE SULFATE
     Dosage: 1-0-0
  11. DESOGESTREL [Concomitant]
     Active Substance: DESOGESTREL
     Dosage: 0-0-1
  12. ROSUVASTATIN [Concomitant]
     Active Substance: ROSUVASTATIN
     Dosage: 0-0-1
  13. JARDIANCE [Concomitant]
     Active Substance: EMPAGLIFLOZIN
     Dosage: 1-0-0
  14. METFORMIN [Concomitant]
     Active Substance: METFORMIN HYDROCHLORIDE
  15. METOPROLOL [Concomitant]
     Active Substance: METOPROLOL
     Dosage: 1-0-1
  16. METOPROLOL [Concomitant]
     Active Substance: METOPROLOL
     Dosage: 47.5 MG, 2X/DAY, 1-0-1
  17. METAMIZOLE [Concomitant]
     Active Substance: METAMIZOLE
  18. ASPIRIN [Concomitant]
     Active Substance: ASPIRIN
     Dosage: 1-0-0

REACTIONS (20)
  - Off label use [Unknown]
  - Fatigue [Recovered/Resolved]
  - Hypotension [Recovered/Resolved]
  - Eye pain [Recovering/Resolving]
  - Arthritis [Recovered/Resolved]
  - Muscle spasms [Recovered/Resolved]
  - Pain in extremity [Recovered/Resolved]
  - Toothache [Recovered/Resolved]
  - Vulvovaginal mycotic infection [Recovered/Resolved]
  - Diarrhoea [Recovered/Resolved]
  - Hypertension [Recovered/Resolved]
  - Noninfective gingivitis [Unknown]
  - Feeling cold [Recovered/Resolved]
  - Vomiting [Recovered/Resolved]
  - Nausea [Recovered/Resolved]
  - COVID-19 [Recovered/Resolved]
  - Visual impairment [Not Recovered/Not Resolved]
  - Fatigue [Recovered/Resolved]
  - Muscular weakness [Recovering/Resolving]
  - Rash [Recovered/Resolved]

NARRATIVE: CASE EVENT DATE: 20210204
